FAERS Safety Report 6888252-X (Version None)
Quarter: 2010Q3

REPORT INFORMATION
  Report Type: 
  Country: None (occurrence: None)
  Receive Date: 20100730
  Receipt Date: 20100729
  Transmission Date: 20110219
  Serious: Yes (Life-Threatening)
  Sender: FDA-Public Use
  Company Number: GXKR2010DE08436

PATIENT
  Sex: Female
  Weight: 45 kg

DRUGS (1)
  1. FUROSEMIDE (NGX) [Suspect]
     Indication: RENAL FAILURE
     Dosage: 125 MG, QD
     Route: 048
     Dates: start: 20100701, end: 20100709

REACTIONS (3)
  - COMA [None]
  - DEHYDRATION [None]
  - EPILEPSY [None]
